FAERS Safety Report 5099717-8 (Version None)
Quarter: 2006Q3

REPORT INFORMATION
  Report Type: 
  Country: None (occurrence: None)
  Receive Date: 20060908
  Receipt Date: 20060906
  Transmission Date: 20061208
  Serious: Yes (Other)
  Sender: FDA-Public Use
  Company Number: US-GLAXOSMITHKLINE-A0619429B

PATIENT
  Age: 33 Year
  Sex: Female

DRUGS (2)
  1. LAMICTAL [Suspect]
     Indication: EPILEPSY
     Dosage: 150MG PER DAY
     Route: 065
  2. DEPAKOTE [Concomitant]
     Indication: EPILEPSY
     Dosage: 1500MG PER DAY
     Route: 065

REACTIONS (2)
  - DRUG EXPOSURE DURING PREGNANCY [None]
  - UTERINE HAEMORRHAGE [None]
